FAERS Safety Report 5535249-8 (Version None)
Quarter: 2007Q4

REPORT INFORMATION
  Report Type: 
  Country: None (occurrence: None)
  Receive Date: 20071206
  Receipt Date: 20071126
  Transmission Date: 20080405
  Serious: Yes (Other)
  Sender: FDA-Public Use
  Company Number: GB-KINGPHARMUSA00001-K200701524

PATIENT

DRUGS (2)
  1. AVINZA [Suspect]
     Dosage: 30 MG, UNK
  2. TRAMADOL HCL [Suspect]
     Dosage: 100 MG, UNK

REACTIONS (7)
  - ERYTHEMA [None]
  - GRAND MAL CONVULSION [None]
  - HYPERHIDROSIS [None]
  - HYPERTENSION [None]
  - PSYCHOMOTOR HYPERACTIVITY [None]
  - SEROTONIN SYNDROME [None]
  - TACHYCARDIA [None]
